FAERS Safety Report 6202348-7 (Version None)
Quarter: 2009Q2

REPORT INFORMATION
  Report Type: 
  Country: None (occurrence: None)
  Receive Date: 20090520
  Receipt Date: 20090504
  Transmission Date: 20091009
  Serious: Yes (Other)
  Sender: FDA-Public Use
  Company Number: 20090158 /

PATIENT
  Age: 21 Year
  Sex: Female

DRUGS (2)
  1. EPINEPHRINE [Suspect]
     Indication: ARRHYTHMIA SUPRAVENTRICULAR
  2. ISOPROTERENOL HCL [Suspect]
     Indication: ARRHYTHMIA SUPRAVENTRICULAR

REACTIONS (5)
  - BLOOD CREATINE PHOSPHOKINASE MB INCREASED [None]
  - ELECTROCARDIOGRAM QT PROLONGED [None]
  - PULMONARY OEDEMA [None]
  - SINUS TACHYCARDIA [None]
  - STRESS CARDIOMYOPATHY [None]
